FAERS Safety Report 11289467 (Version 1)
Quarter: 2015Q3

REPORT INFORMATION
  Report Type: Spontaneous
  Country: US (occurrence: US)
  Receive Date: 20150721
  Receipt Date: 20150721
  Transmission Date: 20151125
  Serious: No
  Sender: FDA-Public Use
  Company Number: US-GALDERMA-US15000346

PATIENT
  Age: 63 Year
  Sex: Female

DRUGS (3)
  1. ORACEA [Suspect]
     Active Substance: DOXYCYCLINE
     Indication: ALOPECIA
     Dosage: 40 MG
     Route: 048
     Dates: start: 20141122
  2. MELOXICAM 7.5 MG [Concomitant]
     Dosage: 7.5MG
     Route: 048
     Dates: start: 2012
  3. CLOBEX [Suspect]
     Active Substance: CLOBETASOL PROPIONATE
     Indication: ALOPECIA
     Dosage: 0.05%
     Route: 061
     Dates: start: 20141111

REACTIONS (2)
  - Drug ineffective for unapproved indication [Not Recovered/Not Resolved]
  - Product use issue [Not Recovered/Not Resolved]

NARRATIVE: CASE EVENT DATE: 201411
